FAERS Safety Report 6702310-1 (Version None)
Quarter: 2010Q2

REPORT INFORMATION
  Report Type: 
  Country: None (occurrence: None)
  Receive Date: 20100429
  Receipt Date: 20100427
  Transmission Date: 20101027
  Serious: Yes (Other)
  Sender: FDA-Public Use
  Company Number: US-BRISTOL-MYERS SQUIBB COMPANY-15080757

PATIENT
  Age: 60 Year
  Sex: Female
  Weight: 63 kg

DRUGS (4)
  1. AVAPRO [Suspect]
  2. CARDURA [Suspect]
     Indication: HYPERTENSION
     Dosage: APR-2009 TO SEP-2009:2MG/DAY
     Route: 048
     Dates: start: 20090401
  3. CARDIZEM [Suspect]
     Indication: HYPERTENSION
     Route: 048
     Dates: start: 20090401
  4. TRILIPIX [Concomitant]
     Indication: BLOOD CHOLESTEROL INCREASED

REACTIONS (3)
  - ANGIOEDEMA [None]
  - JOINT INJURY [None]
  - JOINT SWELLING [None]
